FAERS Safety Report 15735105 (Version 1)
Quarter: 2018Q4

REPORT INFORMATION
  Report Type: Spontaneous
  Country: US (occurrence: US)
  Receive Date: 20181217
  Receipt Date: 20181217
  Transmission Date: 20190205
  Serious: Yes (Hospitalization)
  Sender: FDA-Public Use
  Company Number: None

PATIENT
  Age: 81 Year
  Sex: Male

DRUGS (22)
  1. PHENYLEPHRINE [Concomitant]
     Active Substance: PHENYLEPHRINE\PHENYLEPHRINE HYDROCHLORIDE
  2. PLASMALYTE [Concomitant]
     Active Substance: ELECTROLYTES NOS
  3. DDAVP [Concomitant]
     Active Substance: DESMOPRESSIN ACETATE
  4. PROTAMINE [Suspect]
     Active Substance: PROTAMINE
     Indication: HEPARIN NEUTRALISATION THERAPY
     Route: 042
     Dates: start: 20181206
  5. PROTAMINE [Suspect]
     Active Substance: PROTAMINE
     Route: 042
  6. CEFUROXIME. [Concomitant]
     Active Substance: CEFUROXIME
  7. LIDOCAINE. [Concomitant]
     Active Substance: LIDOCAINE
  8. HEPARIN [Concomitant]
     Active Substance: HEPARIN SODIUM
  9. PROPOFOL. [Concomitant]
     Active Substance: PROPOFOL
  10. SUCCINYLCHOLINE [Concomitant]
     Active Substance: SUCCINYLCHOLINE
  11. EPINEPHRINE. [Concomitant]
     Active Substance: EPINEPHRINE
  12. VASOP0RESSION [Concomitant]
  13. MIDAZOLAM [Concomitant]
     Active Substance: MIDAZOLAM HYDROCHLORIDE
  14. AMIODARONE [Concomitant]
     Active Substance: AMIODARONE
  15. AMINOCAPROIC ACID. [Concomitant]
     Active Substance: AMINOCAPROIC ACID
  16. FUROSEMIDE. [Concomitant]
     Active Substance: FUROSEMIDE
  17. NOREPINEPHRINE. [Concomitant]
     Active Substance: NOREPINEPHRINE
  18. CALCIUM CHOLORIDE [Concomitant]
  19. MAG SULFATE [Concomitant]
  20. ROCURONIUM [Concomitant]
     Active Substance: ROCURONIUM BROMIDE
  21. FENTAYL [Concomitant]
     Active Substance: FENTANYL
  22. DOBUTAMINE [Concomitant]
     Active Substance: DOBUTAMINE\DOBUTAMINE HYDROCHLORIDE

REACTIONS (3)
  - Activated partial thromboplastin time prolonged [None]
  - Therapeutic response decreased [None]
  - Cardiac procedure complication [None]

NARRATIVE: CASE EVENT DATE: 20181206
